FAERS Safety Report 21144390 (Version 3)
Quarter: 2022Q4

REPORT INFORMATION
  Report Type: Spontaneous
  Country: US (occurrence: US)
  Receive Date: 20220728
  Receipt Date: 20221020
  Transmission Date: 20230113
  Serious: Yes (Other)
  Sender: FDA-Public Use
  Company Number: US-PFIZER INC-202101409362

PATIENT
  Age: 26 Year
  Sex: Male

DRUGS (2)
  1. XELJANZ [Suspect]
     Active Substance: TOFACITINIB CITRATE
     Indication: Colitis ulcerative
     Dosage: HAD BEEN ON THE MEDICATION FOR AT LEAST 2 YEARS
     Dates: start: 20191019
  2. XELJANZ [Suspect]
     Active Substance: TOFACITINIB CITRATE
     Dosage: 10 MG,  2X/DAY
     Route: 048
     Dates: start: 2020

REACTIONS (4)
  - Rectal haemorrhage [Recovering/Resolving]
  - Product dose omission issue [Unknown]
  - Product dose omission in error [Unknown]
  - Condition aggravated [Recovering/Resolving]

NARRATIVE: CASE EVENT DATE: 20220901
